FAERS Safety Report 9270161 (Version 1)
Quarter: 2013Q2

REPORT INFORMATION
  Report Type: Spontaneous
  Country: DE (occurrence: DE)
  Receive Date: 20130503
  Receipt Date: 20130503
  Transmission Date: 20140414
  Serious: Yes (Hospitalization)
  Sender: FDA-Public Use
  Company Number: DE-TEVA-399161GER

PATIENT
  Age: 71 Year
  Sex: Female

DRUGS (19)
  1. AMITRIPTYLINE [Suspect]
     Route: 048
     Dates: start: 20121029, end: 20121101
  2. AMITRIPTYLINE [Suspect]
     Route: 048
     Dates: start: 20121102, end: 20121104
  3. AMITRIPTYLINE [Suspect]
     Route: 048
     Dates: start: 20121105, end: 20121116
  4. AMITRIPTYLINE [Suspect]
     Route: 048
     Dates: start: 20121117, end: 20121122
  5. AMITRIPTYLINE [Suspect]
     Route: 048
     Dates: start: 20121123, end: 20121130
  6. AMITRIPTYLINE [Suspect]
     Route: 048
     Dates: start: 20121201
  7. SEROQUEL PROLONG [Suspect]
     Route: 048
     Dates: start: 20120927, end: 20120929
  8. SEROQUEL PROLONG [Suspect]
     Route: 048
     Dates: start: 20120930, end: 20121001
  9. SEROQUEL PROLONG [Suspect]
     Route: 048
     Dates: start: 20121002, end: 20121005
  10. SEROQUEL PROLONG [Suspect]
     Route: 048
     Dates: start: 20121006, end: 20121017
  11. SEROQUEL PROLONG [Suspect]
     Route: 048
     Dates: start: 20121018, end: 20121104
  12. SEROQUEL PROLONG [Suspect]
     Route: 048
     Dates: start: 20121105, end: 20121123
  13. SEROQUEL PROLONG [Suspect]
     Route: 048
     Dates: start: 20121124, end: 20121129
  14. SEROQUEL PROLONG [Suspect]
     Route: 048
     Dates: start: 20121130, end: 20130126
  15. HYPNOREX [Suspect]
     Route: 048
     Dates: start: 20120903, end: 20121122
  16. HYPNOREX [Suspect]
     Route: 048
     Dates: start: 20121123, end: 20121129
  17. HYPNOREX [Suspect]
     Route: 048
     Dates: start: 20121201
  18. L-THYROXIN [Concomitant]
     Route: 048
     Dates: start: 20120903
  19. SEROQUEL [Concomitant]
     Route: 048
     Dates: start: 20121201, end: 20130121

REACTIONS (8)
  - Ataxia [Recovered/Resolved]
  - Apraxia [Recovered/Resolved]
  - Disorientation [Recovered/Resolved]
  - Adjustment disorder [Recovered/Resolved]
  - Communication disorder [Recovered/Resolved]
  - Delusional perception [Recovered/Resolved]
  - Dysarthria [Recovered/Resolved]
  - Balance disorder [Recovered/Resolved]
